FAERS Safety Report 9403730 (Version 1)
Quarter: 2013Q3

REPORT INFORMATION
  Report Type: Spontaneous
  Country: US (occurrence: None)
  Receive Date: 20130715
  Receipt Date: 20130715
  Transmission Date: 20140515
  Serious: Yes (Hospitalization)
  Sender: FDA-Public Use
  Company Number: None

PATIENT
  Age: 32 Year
  Sex: Male
  Weight: 98.2 kg

DRUGS (4)
  1. CETUXIMAB (ERBITUX) (714692) [Suspect]
  2. ADDERALL [Concomitant]
  3. CELEXA [Concomitant]
  4. LISINOPRIL [Concomitant]

REACTIONS (2)
  - Dysphagia [None]
  - Oral candidiasis [None]
